FAERS Safety Report 19168311 (Version 2)
Quarter: 2022Q1

REPORT INFORMATION
  Report Type: Spontaneous
  Country: US (occurrence: US)
  Receive Date: 20210422
  Receipt Date: 20220224
  Transmission Date: 20220424
  Serious: Yes (Hospitalization, Other)
  Sender: FDA-Public Use
  Company Number: US-GLAXOSMITHKLINE-US2021GSK090200

PATIENT
  Sex: Female

DRUGS (8)
  1. ZANTAC [Suspect]
     Active Substance: RANITIDINE HYDROCHLORIDE
     Indication: Dyspepsia
     Dosage: 50 MG AS REQUIRED
     Route: 042
     Dates: start: 20170619
  2. ZANTAC [Suspect]
     Active Substance: RANITIDINE HYDROCHLORIDE
     Indication: Dyspepsia
     Dosage: 150 MG, BID AS REQUIRED
     Route: 048
     Dates: start: 20170619
  3. ZANTAC [Suspect]
     Active Substance: RANITIDINE HYDROCHLORIDE
     Dosage: 150 MG, QD
     Route: 048
     Dates: start: 20171114
  4. RANITIDINE HYDROCHLORIDE [Suspect]
     Active Substance: RANITIDINE HYDROCHLORIDE
     Indication: Product used for unknown indication
     Dosage: 25 MG AS REQUIRED
     Route: 065
     Dates: start: 20180221
  5. RANITIDINE HYDROCHLORIDE [Suspect]
     Active Substance: RANITIDINE HYDROCHLORIDE
     Indication: Product used for unknown indication
     Dosage: UNK
     Route: 065
  6. ZANTAC [Suspect]
     Active Substance: RANITIDINE HYDROCHLORIDE
     Indication: Dyspepsia
     Dosage: 150 MG, QD
     Route: 065
     Dates: start: 2014, end: 2018
  7. RANITIDINE [Suspect]
     Active Substance: RANITIDINE
     Indication: Dyspepsia
     Dosage: 150 MG, QD
     Route: 065
     Dates: start: 2014, end: 2018
  8. RANITIDINE [Suspect]
     Active Substance: RANITIDINE
     Indication: Dyspepsia
     Dosage: 150 MG, QD
     Route: 065
     Dates: start: 2014, end: 2018

REACTIONS (25)
  - Colon cancer stage I [Unknown]
  - Lower gastrointestinal haemorrhage [Unknown]
  - Diarrhoea haemorrhagic [Unknown]
  - Pulmonary mass [Unknown]
  - Haematochezia [Unknown]
  - Gastrointestinal carcinoma [Unknown]
  - Colorectal cancer [Unknown]
  - Colon cancer [Unknown]
  - Gastrointestinal haemorrhage [Unknown]
  - Gastric cancer [Unknown]
  - Lung adenocarcinoma [Unknown]
  - Lung neoplasm malignant [Unknown]
  - Gastritis erosive [Unknown]
  - Rectal haemorrhage [Unknown]
  - Gastric ulcer [Unknown]
  - Large intestine polyp [Unknown]
  - Atelectasis [Unknown]
  - Diverticulum [Unknown]
  - Diverticulum intestinal [Unknown]
  - Abdominal adhesions [Unknown]
  - Abdominal pain lower [Unknown]
  - Haemorrhoids [Unknown]
  - Pleural effusion [Unknown]
  - Bronchitis [Unknown]
  - Lung infiltration [Unknown]
